FAERS Safety Report 5678068-4 (Version None)
Quarter: 2008Q1

REPORT INFORMATION
  Report Type: 
  Country: None (occurrence: None)
  Receive Date: 20080319
  Receipt Date: 20080310
  Transmission Date: 20080703
  Serious: Yes (Other)
  Sender: FDA-Public Use
  Company Number: B0512424A

PATIENT
  Age: 70 Year
  Sex: 0

DRUGS (1)
  1. ALBENDAZOLE (FORMULATION UNKNOWN)(GENERIC) (ALBENDAZOLE) [Suspect]
     Indication: ECHINOCOCCIASIS

REACTIONS (1)
  - HEPATOTOXICITY [None]
